FAERS Safety Report 9445071 (Version 12)
Quarter: 2014Q4

REPORT INFORMATION
  Report Type: Spontaneous
  Country: GB (occurrence: GB)
  Receive Date: 20130807
  Receipt Date: 20141125
  Transmission Date: 20150529
  Serious: Yes (Death, Other)
  Sender: FDA-Public Use
  Company Number: PHFR2013GB004514

PATIENT
  Age: 37 Year
  Sex: Female

DRUGS (5)
  1. CAPECITABINE. [Concomitant]
     Active Substance: CAPECITABINE
     Indication: PRODUCT USED FOR UNKNOWN INDICATION
     Dosage: UKN
     Route: 065
  2. AMISULPRIDE [Concomitant]
     Active Substance: AMISULPRIDE
     Indication: PRODUCT USED FOR UNKNOWN INDICATION
     Dosage: UKN
     Route: 065
  3. CLOZARIL [Suspect]
     Active Substance: CLOZAPINE
     Indication: SCHIZOPHRENIA
     Dosage: UNK
     Route: 048
     Dates: start: 20090106
  4. LANSOPRAZOL [Concomitant]
     Active Substance: LANSOPRAZOLE
     Indication: PRODUCT USED FOR UNKNOWN INDICATION
     Dosage: UKN
     Route: 065
  5. HYOSCINE [Concomitant]
     Active Substance: SCOPOLAMINE
     Indication: PRODUCT USED FOR UNKNOWN INDICATION
     Dosage: UKN
     Route: 065

REACTIONS (10)
  - Neutrophil count increased [Not Recovered/Not Resolved]
  - Metastases to liver [Fatal]
  - Pain [Unknown]
  - Platelet count increased [Unknown]
  - Insomnia [Unknown]
  - Dysphagia [Fatal]
  - White blood cell count increased [Not Recovered/Not Resolved]
  - Platelet count decreased [Recovered/Resolved]
  - Hepatitis C [Unknown]
  - Oesophageal carcinoma [Fatal]

NARRATIVE: CASE EVENT DATE: 20130805
